FAERS Safety Report 5102890-6 (Version None)
Quarter: 2006Q3

REPORT INFORMATION
  Report Type: 
  Country: None (occurrence: None)
  Receive Date: 20060908
  Receipt Date: 20060828
  Transmission Date: 20061208
  Serious: Yes (Death, Life-Threatening)
  Sender: FDA-Public Use
  Company Number: HQWYE688302AUG06

PATIENT
  Age: 86 Year
  Sex: Male

DRUGS (2)
  1. MYLOTARG [Suspect]
     Indication: ACUTE MYELOID LEUKAEMIA
     Dosage: 14.8 MG 1X PER 1 DAY, INTRAVENOUS; SEE IMAGE
     Route: 042
     Dates: start: 20050701, end: 20050701
  2. MYLOTARG [Suspect]
     Indication: ACUTE MYELOID LEUKAEMIA
     Dosage: 14.8 MG 1X PER 1 DAY, INTRAVENOUS; SEE IMAGE
     Route: 042
     Dates: start: 20050712, end: 20050712

REACTIONS (14)
  - ATELECTASIS [None]
  - BLOOD CULTURE POSITIVE [None]
  - CARDIOMEGALY [None]
  - CEREBRAL ATROPHY [None]
  - CHOLELITHIASIS [None]
  - EMPHYSEMA [None]
  - ENTEROCOCCAL INFECTION [None]
  - HYPOXIA [None]
  - LUNG NEOPLASM [None]
  - PLEURAL EFFUSION [None]
  - PNEUMONIA BACTERIAL [None]
  - PULMONARY EMBOLISM [None]
  - PULMONARY OEDEMA [None]
  - RENAL FAILURE ACUTE [None]
